FAERS Safety Report 18134561 (Version 3)
Quarter: 2020Q4

REPORT INFORMATION
  Report Type: Spontaneous
  Country: US (occurrence: US)
  Receive Date: 20200811
  Receipt Date: 20201104
  Transmission Date: 20210113
  Serious: No
  Sender: FDA-Public Use
  Company Number: US-PFIZER INC-2019485224

PATIENT
  Age: 76 Year
  Sex: Female

DRUGS (2)
  1. LYRICA [Suspect]
     Active Substance: PREGABALIN
     Dosage: 150 MG, 1X/DAY (TWO 75 MG)
     Route: 048
  2. LYRICA [Suspect]
     Active Substance: PREGABALIN
     Dosage: 750 MG, 1X/DAY (ON PRESCRIPTION LYRICA 75 MG EVERY 12 HRS AND THEN LYRICA 300 MG TWICE A DAY)

REACTIONS (3)
  - Prescribed overdose [Unknown]
  - Confusional state [Unknown]
  - Limb discomfort [Unknown]
